FAERS Safety Report 5090466-9 (Version None)
Quarter: 2006Q3

REPORT INFORMATION
  Report Type: 
  Country: None (occurrence: None)
  Receive Date: 20060828
  Receipt Date: 20060510
  Transmission Date: 20061208
  Serious: Yes (Disabling, Other)
  Sender: FDA-Public Use
  Company Number: US-GLAXOSMITHKLINE-A0605048A

PATIENT
  Age: 43 Year
  Sex: Female
  Weight: 77.3 kg

DRUGS (2)
  1. WELLBUTRIN XL [Suspect]
     Indication: DRUG USE FOR UNKNOWN INDICATION
     Dosage: 150MG UNKNOWN
     Route: 048
     Dates: start: 20060412, end: 20060504
  2. SYNTHROID [Concomitant]

REACTIONS (2)
  - RASH [None]
  - URTICARIA PRESSURE [None]
